FAERS Safety Report 8894762 (Version 2)
Quarter: 2013Q1

REPORT INFORMATION
  Report Type: Spontaneous
  Country: US (occurrence: US)
  Receive Date: 20121107
  Receipt Date: 20130215
  Transmission Date: 20140127
  Serious: No
  Sender: FDA-Public Use
  Company Number: US-009507513-1211USA000516

PATIENT
  Age: 21 Year
  Sex: Female
  Weight: 81.63 kg

DRUGS (3)
  1. IMPLANON [Suspect]
     Indication: CONTRACEPTION
     Dosage: 1 ROD UP TO 3 YRS
     Route: 059
     Dates: start: 20120619
  2. VITAMINS (UNSPECIFIED) [Concomitant]
     Dosage: UNK, PRN
  3. TYLENOL [Concomitant]
     Dosage: UNK, PRN

REACTIONS (6)
  - Burning sensation [Unknown]
  - Amenorrhoea [Unknown]
  - Pain in extremity [Unknown]
  - Abdominal pain [Unknown]
  - Mood swings [Unknown]
  - Headache [Unknown]
